FAERS Safety Report 16213508 (Version 2)
Quarter: 2019Q2

REPORT INFORMATION
  Report Type: Spontaneous
  Country: US (occurrence: US)
  Receive Date: 20190418
  Receipt Date: 20190517
  Transmission Date: 20190711
  Serious: Yes (Other)
  Sender: FDA-Public Use
  Company Number: US-REGENERON PHARMACEUTICALS, INC.-2019-26670

PATIENT

DRUGS (3)
  1. EYLEA [Suspect]
     Active Substance: AFLIBERCEPT
     Indication: NEOVASCULAR AGE-RELATED MACULAR DEGENERATION
     Dosage: 2MG/0.05ML, Q6W, LEFT EYE
     Route: 031
     Dates: start: 20190118, end: 20190426
  2. EYLEA [Suspect]
     Active Substance: AFLIBERCEPT
     Dosage: 2MG/0.05ML, Q6W,  LEFT EYE, FIRST DOSE
     Route: 031
     Dates: start: 20190118, end: 20190118
  3. EYLEA [Suspect]
     Active Substance: AFLIBERCEPT
     Dosage: 2MG/0.05ML, Q6W,  LEFT EYE, LAST DOSE
     Route: 031
     Dates: start: 20190307, end: 20190307

REACTIONS (3)
  - Headache [Recovered/Resolved]
  - Thrombosis [Recovered/Resolved]
  - Chromatopsia [Recovered/Resolved]

NARRATIVE: CASE EVENT DATE: 20190304
